FAERS Safety Report 8830179 (Version 2)
Quarter: 2013Q1

REPORT INFORMATION
  Report Type: Spontaneous
  Country: US (occurrence: None)
  Receive Date: 20121004
  Receipt Date: 20121227
  Transmission Date: 20140127
  Serious: Yes (Other)
  Sender: FDA-Public Use
  Company Number: AUR-APL-2012-04221

PATIENT
  Age: 84 Year
  Sex: Female
  Weight: 68.93 kg

DRUGS (12)
  1. METOPROLOL [Suspect]
     Indication: HYPERTENSION
     Dosage: P.M. 1/2 25 MG, UNKNOWN
  2. CALTRATE 600 + D [Suspect]
     Indication: PRODUCT USED FOR UNKNOWN INDICATION
     Dosage: 2 DF/CHEWABLE TABLETS IN MORNING, 1X/DAY
  3. CENTRUM SILVER [Suspect]
     Indication: PRODUCT USED FOR UNKNOWN INDICATION
     Dosage: 1X/DAY (AM), UNKNOWN
  4. SPIRONOLACTONE AND HYDROCHLOROTHIAZIDE [Suspect]
     Indication: JOINT SWELLING
     Dosage: ONE TABLET (25/25 TABLET) IN THE AM
  5. OMEPRAZOLE (OMEPRAZOLE) [Suspect]
     Indication: PRODUCT USED FOR UNKNOWN INDICATION
     Dosage: 1X/DAY (O/C) (AM) (20 MG), UNKNOWN
  6. OMEGA-3 [Suspect]
     Indication: PRODUCT USED FOR UNKNOWN INDICATION
     Dosage: 1X/DAY (AM), UNKNOWN
  7. VITAMIN B [Suspect]
     Indication: PRODUCT USED FOR UNKNOWN INDICATION
     Dosage: 1X/DAY (AM), UNKNOWN
  8. BIOTIN [Suspect]
     Indication: PRODUCT USED FOR UNKNOWN INDICATION
     Dosage: 5000 UG, 1X/DAY AM (5000 MCG), UNKNOWN
  9. COLACE (DOCUSATE SODIUM) [Suspect]
     Indication: PRODUCT USED FOR UNKNOWN INDICATION
     Dosage: 2X/DAY (AM) + PM) (100 MG), UNKNOWN
  10. PRAVASTATIN SODIUM [Suspect]
     Indication: BLOOD CHOLESTEROL INCREASED
     Dosage: 1X/DAY (PM), UNKNOWN
  11. ASPIRIN [Suspect]
     Indication: PRODUCT USED FOR UNKNOWN INDICATION
     Dosage: 325 UNK, 1X/DAY (PM), UNKNOWN
  12. METAMUCIL [Suspect]
     Indication: PRODUCT USED FOR UNKNOWN INDICATION
     Dosage: 3 CAPSULES AT PM, UNKNOWN

REACTIONS (4)
  - Impaired driving ability [None]
  - Altered state of consciousness [None]
  - Drug interaction [None]
  - Visual acuity reduced transiently [None]
